FAERS Safety Report 25428982 (Version 1)
Quarter: 2025Q2

REPORT INFORMATION
  Report Type: Report from Study
  Country: BR (occurrence: BR)
  Receive Date: 20250612
  Receipt Date: 20250612
  Transmission Date: 20250716
  Serious: Yes (Other)
  Sender: Ina Pharmaceutics
  Company Number: BR-INA Pharmaceutics-000001

PATIENT
  Sex: Female

DRUGS (1)
  1. KETOCONAZOLE [Suspect]
     Active Substance: KETOCONAZOLE
     Indication: Precocious puberty
     Route: 065

REACTIONS (1)
  - Adrenal insufficiency [Unknown]
